FAERS Safety Report 4890836-5 (Version None)
Quarter: 2006Q1

REPORT INFORMATION
  Report Type: 
  Country: None (occurrence: None)
  Receive Date: 20060125
  Receipt Date: 20051129
  Transmission Date: 20060701
  Serious: Yes (Hospitalization)
  Sender: FDA-Public Use
  Company Number: US-BRISTOL-MYERS SQUIBB COMPANY-13197223

PATIENT
  Age: 55 Year
  Sex: Female
  Weight: 52 kg

DRUGS (24)
  1. CISPLATIN [Suspect]
     Indication: GASTRIC CANCER STAGE IV
     Route: 041
     Dates: start: 20051110, end: 20051110
  2. FLUOROURACIL [Suspect]
     Indication: GASTRIC CANCER STAGE IV
     Route: 041
     Dates: start: 20051115, end: 20051115
  3. ATIVAN [Concomitant]
     Indication: NAUSEA
     Route: 048
     Dates: start: 20051026
  4. ATIVAN [Concomitant]
     Indication: ANXIETY
     Route: 048
     Dates: start: 20051026
  5. COMPAZINE [Concomitant]
     Indication: NAUSEA
     Route: 048
     Dates: start: 20051026
  6. OXYCODONE [Concomitant]
     Indication: ABDOMINAL PAIN
     Route: 048
     Dates: start: 20051010
  7. HYCODAN [Concomitant]
     Indication: COUGH
     Route: 048
     Dates: start: 20051010
  8. NEULASTA [Concomitant]
     Indication: NEUTROPENIA
     Route: 058
     Dates: start: 20051115, end: 20051115
  9. ALOXI [Concomitant]
     Indication: NAUSEA
     Route: 042
     Dates: start: 20051111, end: 20051111
  10. PHENERGAN [Concomitant]
     Indication: NAUSEA
     Route: 040
     Dates: start: 20051111, end: 20051111
  11. DECADRON [Concomitant]
     Indication: PREMEDICATION
     Route: 042
     Dates: start: 20051110, end: 20051117
  12. KYTRIL [Concomitant]
     Indication: PREMEDICATION
     Route: 042
     Dates: start: 20051110, end: 20051117
  13. COMPAZINE [Concomitant]
     Route: 054
  14. RHINOCORT [Concomitant]
     Indication: SEASONAL ALLERGY
     Route: 055
     Dates: start: 20040101
  15. ALLEGRA [Concomitant]
     Indication: SEASONAL ALLERGY
     Route: 048
     Dates: start: 20040101
  16. DITROPAN XL [Concomitant]
     Indication: POLLAKIURIA
     Route: 048
  17. MIRALAX [Concomitant]
     Indication: CONSTIPATION
     Route: 048
     Dates: start: 20051010
  18. LUNESTA [Concomitant]
     Indication: INSOMNIA
     Route: 048
     Dates: start: 20051012
  19. EMEND [Concomitant]
     Indication: PROPHYLAXIS OF NAUSEA AND VOMITING
     Route: 048
     Dates: start: 20051111
  20. NORMAL SALINE [Concomitant]
     Indication: NAUSEA
     Route: 042
     Dates: start: 20051114, end: 20051115
  21. ATIVAN [Concomitant]
     Indication: PREMEDICATION
     Route: 042
     Dates: start: 20051114, end: 20051114
  22. HYDROGEN PEROXIDE SOLUTION [Concomitant]
     Indication: BLISTER
     Route: 061
     Dates: start: 20051115, end: 20051115
  23. DIFLUCAN [Concomitant]
     Indication: MUCOSAL INFLAMMATION
     Route: 048
     Dates: start: 20051115, end: 20051115
  24. BACTROBAN [Concomitant]
     Indication: BLISTER
     Route: 061
     Dates: start: 20051115

REACTIONS (13)
  - BLOOD POTASSIUM DECREASED [None]
  - CATHETER RELATED INFECTION [None]
  - HAEMATOCRIT DECREASED [None]
  - HAEMOGLOBIN DECREASED [None]
  - HYPOVOLAEMIA [None]
  - MALNUTRITION [None]
  - MUCOSAL INFLAMMATION [None]
  - NAUSEA [None]
  - ORAL CANDIDIASIS [None]
  - STAPHYLOCOCCAL INFECTION [None]
  - VOMITING [None]
  - WEIGHT DECREASED [None]
  - WHITE BLOOD CELL COUNT INCREASED [None]
